FAERS Safety Report 17103417 (Version 1)
Quarter: 2019Q4

REPORT INFORMATION
  Report Type: Spontaneous
  Country: US (occurrence: US)
  Receive Date: 20191202
  Receipt Date: 20191202
  Transmission Date: 20200122
  Serious: Yes (Other)
  Sender: FDA-Public Use
  Company Number: None

PATIENT
  Age: 72 Year
  Sex: Female
  Weight: 78.75 kg

DRUGS (8)
  1. SYNTHROID [Concomitant]
     Active Substance: LEVOTHYROXINE SODIUM
  2. VITAMIN C [Concomitant]
     Active Substance: ASCORBIC ACID
  3. VIT D [Concomitant]
     Active Substance: VITAMIN D NOS
  4. CITALOPRAM [Concomitant]
     Active Substance: CITALOPRAM HYDROBROMIDE
  5. VITAMIN E [Concomitant]
     Active Substance: .ALPHA.-TOCOPHEROL
  6. MAGNESIUM [Concomitant]
     Active Substance: MAGNESIUM
  7. TRULICITY [Suspect]
     Active Substance: DULAGLUTIDE
     Indication: DIABETES MELLITUS
     Dosage: ?          QUANTITY:1 INJECTION(S);OTHER FREQUENCY:ONCE A WEEK;?
     Route: 030
  8. CINNAMON. [Concomitant]
     Active Substance: CINNAMON

REACTIONS (1)
  - Abdominal pain upper [None]

NARRATIVE: CASE EVENT DATE: 20191120
